FAERS Safety Report 5401173-4 (Version None)
Quarter: 2007Q3

REPORT INFORMATION
  Report Type: 
  Country: None (occurrence: None)
  Receive Date: 20070731
  Receipt Date: 20070720
  Transmission Date: 20080115
  Serious: Yes (Hospitalization)
  Sender: FDA-Public Use
  Company Number: PHHO2007KR08549

PATIENT
  Age: 25 Year
  Sex: Male

DRUGS (2)
  1. CLOZARIL [Suspect]
     Indication: SCHIZOPHRENIA
     Dosage: 350 MG/DAILY
     Route: 048
     Dates: start: 20070329
  2. CLOZARIL [Suspect]
     Dosage: 325 MG/DAILY
     Route: 048

REACTIONS (5)
  - DISSOCIATION [None]
  - IRRITABILITY [None]
  - PARANOIA [None]
  - SCHIZOPHRENIA [None]
  - SOLILOQUY [None]
